FAERS Safety Report 5761223-2 (Version None)
Quarter: 2008Q2

REPORT INFORMATION
  Report Type: 
  Country: None (occurrence: None)
  Receive Date: 20080606
  Receipt Date: 20080528
  Transmission Date: 20081010
  Serious: Yes (Hospitalization)
  Sender: FDA-Public Use
  Company Number: PHBS2008US04669

PATIENT
  Sex: Male
  Weight: 1.325 kg

DRUGS (4)
  1. METOPROLOL TARTRATE [Suspect]
     Indication: HYPERTENSION
     Dosage: 50 MG IN MORNING, 25 MG IN EVENING
     Route: 064
  2. TACROLIMUS [Concomitant]
     Dosage: 1 MG, BID
     Route: 064
  3. PREDNISONE TAB [Concomitant]
     Dosage: 5 MG, QD
     Route: 064
  4. CALCIUM ACETATE [Concomitant]
     Dosage: 1334 MG, TID
     Route: 064

REACTIONS (7)
  - APNOEA [None]
  - CAESAREAN SECTION [None]
  - DRUG EXPOSURE DURING PREGNANCY [None]
  - MATERNAL DRUGS AFFECTING FOETUS [None]
  - NEONATAL RESPIRATORY DISTRESS SYNDROME [None]
  - PREMATURE BABY [None]
  - RESPIRATORY DISTRESS [None]
